FAERS Safety Report 5753882-5 (Version None)
Quarter: 2008Q2

REPORT INFORMATION
  Report Type: 
  Country: None (occurrence: None)
  Receive Date: 20080530
  Receipt Date: 20080521
  Transmission Date: 20081010
  Serious: Yes (Other)
  Sender: FDA-Public Use
  Company Number: B0360731A

PATIENT
  Sex: Male

DRUGS (6)
  1. PAROXETINE HCL [Suspect]
     Indication: SOCIAL PHOBIA
     Dosage: 20MG PER DAY
     Route: 065
     Dates: start: 19991130, end: 20030101
  2. FLUOXETINE HCL [Concomitant]
     Indication: SOCIAL PHOBIA
     Dosage: 20MG ALTERNATE DAYS
     Dates: start: 19990920
  3. CITALOPRAM HYDROBROMIDE [Concomitant]
     Dates: start: 20031101, end: 20070901
  4. PROPRANOLOL [Concomitant]
     Dates: start: 20031101
  5. ESCITALOPRAM [Concomitant]
     Dates: start: 20070901
  6. CLONAZEPAM [Concomitant]
     Dates: start: 20071001

REACTIONS (12)
  - BURNING SENSATION [None]
  - CONDITION AGGRAVATED [None]
  - DISTURBANCE IN ATTENTION [None]
  - DRUG WITHDRAWAL SYNDROME [None]
  - EMOTIONAL DISTRESS [None]
  - FLUSHING [None]
  - HYPERHIDROSIS [None]
  - IRRITABILITY [None]
  - PANIC REACTION [None]
  - PARAESTHESIA [None]
  - SOCIAL AVOIDANT BEHAVIOUR [None]
  - SUICIDAL IDEATION [None]
